FAERS Safety Report 14785306 (Version 1)
Quarter: 2018Q2

REPORT INFORMATION
  Report Type: Spontaneous
  Country: RU (occurrence: RU)
  Receive Date: 20180420
  Receipt Date: 20180420
  Transmission Date: 20180711
  Serious: Yes (Hospitalization)
  Sender: FDA-Public Use
  Company Number: RU-ASTRAZENECA-2018SE11293

PATIENT
  Age: 77 Year
  Sex: Male
  Weight: 100 kg

DRUGS (3)
  1. ALOGLIPTIN. [Concomitant]
     Active Substance: ALOGLIPTIN
  2. INSULIN [Concomitant]
     Active Substance: INSULIN NOS
  3. FORXIGA [Suspect]
     Active Substance: DAPAGLIFLOZIN
     Indication: DIABETES MELLITUS
     Dosage: DAILY
     Route: 048
     Dates: end: 201712

REACTIONS (6)
  - Glycosuria [Recovered/Resolved]
  - Product use issue [Recovered/Resolved]
  - Pleural effusion [Recovered/Resolved]
  - Bacterial test positive [Recovered/Resolved]
  - Blood pressure increased [Recovered/Resolved]
  - Off label use [Recovered/Resolved]
